FAERS Safety Report 22144997 (Version 1)
Quarter: 2023Q1

REPORT INFORMATION
  Report Type: Spontaneous
  Country: SI (occurrence: SI)
  Receive Date: 20230328
  Receipt Date: 20230328
  Transmission Date: 20230417
  Serious: Yes (Other)
  Sender: FDA-Public Use
  Company Number: SI-002147023-NVSC2023SI065648

PATIENT
  Age: 52 Year
  Sex: Male

DRUGS (2)
  1. MAYZENT [Suspect]
     Active Substance: SIPONIMOD
     Indication: Secondary progressive multiple sclerosis
     Dosage: UNK
     Route: 065
     Dates: start: 202012
  2. GLATIRAMER ACETATE [Suspect]
     Active Substance: GLATIRAMER ACETATE
     Indication: Product used for unknown indication
     Dosage: UNK
     Route: 065
     Dates: start: 2013, end: 2020

REACTIONS (14)
  - Pyramidal tract syndrome [Unknown]
  - Multiple sclerosis [Unknown]
  - Expanded disability status scale score increased [Unknown]
  - Urinary tract disorder [Unknown]
  - Nervous system disorder [Unknown]
  - Gait disturbance [Recovering/Resolving]
  - Memory impairment [Unknown]
  - Diplopia [Unknown]
  - Mobility decreased [Unknown]
  - Ataxia [Unknown]
  - Hypoaesthesia [Unknown]
  - Depression [Unknown]
  - Fatigue [Unknown]
  - Tremor [Unknown]
